FAERS Safety Report 8010056-5 (Version None)
Quarter: 2011Q4

REPORT INFORMATION
  Report Type: 
  Country: None (occurrence: None)
  Receive Date: 20111228
  Receipt Date: 20111216
  Transmission Date: 20120403
  Serious: Yes (Hospitalization)
  Sender: FDA-Public Use
  Company Number: JP-UCBSA-046779

PATIENT
  Age: 50 Year
  Sex: Female

DRUGS (14)
  1. CALFINA [Suspect]
     Indication: OSTEOPOROSIS
     Dosage: DAILY DOSE : 1 MCG
     Route: 048
     Dates: start: 20111004
  2. LANSOPRAZOLE [Suspect]
     Indication: GASTRITIS
     Dosage: DAILY DOSE : 15 MG
     Route: 048
     Dates: start: 20111004
  3. EVISTA [Suspect]
     Indication: OSTEOPOROSIS
     Dosage: DAILY DOSE : 60 MG
     Route: 048
     Dates: start: 20111004
  4. MIXED KILLED BACTERIA HYDROCORTISONE [Concomitant]
     Dosage: ONCE NIGHTLY
     Dates: start: 20110607
  5. DIQUAFOSOL SODIUM [Concomitant]
     Dosage: ONCE NIGHTLY
     Dates: start: 20110629
  6. SODIUM HYALURONATE [Concomitant]
     Dosage: ONCE NIGHTLY
     Dates: start: 20110704
  7. DIMETHYL ISOPROPYLAZULENE [Concomitant]
     Dosage: ONCE NIGHTLY
     Dates: start: 20110713
  8. LONMIEL [Suspect]
     Indication: GASTRITIS PROPHYLAXIS
     Dosage: DAILY DOSE : 400 MG
     Route: 048
     Dates: start: 20111004
  9. SOFTSANTEAR [Concomitant]
     Dosage: ONCE NIGHTLY
     Dates: start: 20110722
  10. BECLOMETHASONE DIPROPIONATE [Concomitant]
     Dosage: DAILY DOSE:QS
     Dates: start: 20111102
  11. OFLOXACIN [Concomitant]
     Dosage: ONCE NIGHTLY
     Dates: start: 20110722
  12. NADIFLOXACIN [Concomitant]
     Dosage: DAILY DOSE : QS
     Dates: start: 20111102
  13. CERTOLIZUMAB PEGOL [Suspect]
     Indication: RHEUMATOID ARTHRITIS
     Route: 058
     Dates: start: 20091228, end: 20110613
  14. LOXONIN [Suspect]
     Indication: RHEUMATOID ARTHRITIS
     Dosage: DAILY DOSE : 60 MG
     Route: 048
     Dates: start: 20111105

REACTIONS (1)
  - LIVER DISORDER [None]
